FAERS Safety Report 13013042 (Version 1)
Quarter: 2016Q4

REPORT INFORMATION
  Report Type: Spontaneous
  Country: US (occurrence: US)
  Receive Date: 20161208
  Receipt Date: 20161208
  Transmission Date: 20170207
  Serious: No
  Sender: FDA-Public Use
  Company Number: None

PATIENT
  Age: 41 Year
  Sex: Male
  Weight: 78.75 kg

DRUGS (2)
  1. DORZOLAMIDE/TIMOLOL [Suspect]
     Active Substance: DORZOLAMIDE\TIMOLOL
     Indication: GLAUCOMA
     Dosage: ?          QUANTITY:1 DROP(S);?
     Route: 047
     Dates: start: 20161106, end: 20161125
  2. ZADITOR [Suspect]
     Active Substance: KETOTIFEN FUMARATE

REACTIONS (5)
  - Vision blurred [None]
  - Headache [None]
  - Epistaxis [None]
  - Discomfort [None]
  - Intraocular pressure increased [None]

NARRATIVE: CASE EVENT DATE: 20161106
